FAERS Safety Report 5052480-9 (Version None)
Quarter: 2006Q3

REPORT INFORMATION
  Report Type: 
  Country: None (occurrence: None)
  Receive Date: 20060712
  Receipt Date: 20060712
  Transmission Date: 20061208
  Serious: Yes (Life-Threatening, Hospitalization, Other)
  Sender: FDA-Public Use
  Company Number: None

PATIENT
  Age: 38 Year
  Sex: Male
  Weight: 101.2 kg

DRUGS (1)
  1. EQUETRO [Suspect]
     Indication: BIPOLAR DISORDER
     Dosage: 400MG  BID   PO
     Route: 048

REACTIONS (8)
  - CONJUNCTIVAL HYPERAEMIA [None]
  - CONJUNCTIVAL OEDEMA [None]
  - DEHYDRATION [None]
  - MUCOSAL ULCERATION [None]
  - RASH ERYTHEMATOUS [None]
  - RASH PAPULAR [None]
  - TONGUE COATED [None]
  - TONGUE OEDEMA [None]
